FAERS Safety Report 22120330 (Version 2)
Quarter: 2024Q1

REPORT INFORMATION
  Report Type: Spontaneous
  Country: US (occurrence: None)
  Receive Date: 20230321
  Receipt Date: 20240326
  Transmission Date: 20240410
  Serious: No
  Sender: FDA-Public Use
  Company Number: US-ROCHE-3237180

PATIENT
  Sex: Female

DRUGS (1)
  1. EVRYSDI [Suspect]
     Active Substance: RISDIPLAM
     Indication: Spinal muscular atrophy
     Route: 065

REACTIONS (5)
  - Maternal exposure during pregnancy [Unknown]
  - Alopecia [Unknown]
  - Muscle twitching [Unknown]
  - Dysphagia [Unknown]
  - COVID-19 [Unknown]
